FAERS Safety Report 8390684-8 (Version None)
Quarter: 2012Q2

REPORT INFORMATION
  Report Type: 
  Country: None (occurrence: None)
  Receive Date: 20120529
  Receipt Date: 20120522
  Transmission Date: 20120825
  Serious: Yes (Death, Hospitalization)
  Sender: FDA-Public Use
  Company Number: PHHY2012TR045073

PATIENT
  Age: 19 Year
  Sex: Female

DRUGS (3)
  1. VALPROIC ACID [Suspect]
     Indication: DYSKINESIA
     Dosage: 500 MG, BID
  2. TETRADOX [Concomitant]
     Indication: BRUCELLOSIS
     Dosage: 1 DF, BID
  3. STREPTOMYCIN [Concomitant]
     Dosage: 1G FLK ONE TO BE USED FOR 21 DAYS

REACTIONS (33)
  - HEPATOMEGALY [None]
  - PYREXIA [None]
  - HEART RATE INCREASED [None]
  - DRUG RASH WITH EOSINOPHILIA AND SYSTEMIC SYMPTOMS [None]
  - RESPIRATORY RATE INCREASED [None]
  - LYMPHADENOPATHY [None]
  - RASH GENERALISED [None]
  - RASH ERYTHEMATOUS [None]
  - EOSINOPHIL COUNT INCREASED [None]
  - HAEMOGLOBIN DECREASED [None]
  - LIVER PALPABLE SUBCOSTAL [None]
  - SPLEEN CONGESTION [None]
  - WHITE BLOOD CELL COUNT INCREASED [None]
  - RED BLOOD CELL SEDIMENTATION RATE INCREASED [None]
  - PROTHROMBIN TIME PROLONGED [None]
  - INTERSTITIAL LUNG DISEASE [None]
  - LACTIC ACIDOSIS [None]
  - HYPERAEMIA [None]
  - COUGH [None]
  - AMMONIA INCREASED [None]
  - PLEURAL EFFUSION [None]
  - RESPIRATORY ALKALOSIS [None]
  - BREATH SOUNDS ABNORMAL [None]
  - ENCEPHALOPATHY [None]
  - JAUNDICE [None]
  - ACUTE TONSILLITIS [None]
  - METABOLIC ACIDOSIS [None]
  - SPLEEN PALPABLE [None]
  - ASCITES [None]
  - TONSILLAR HYPERTROPHY [None]
  - ACTIVATED PARTIAL THROMBOPLASTIN TIME PROLONGED [None]
  - ANTINEUTROPHIL CYTOPLASMIC ANTIBODY POSITIVE [None]
  - ANTIBIOTIC RESISTANT STAPHYLOCOCCUS TEST POSITIVE [None]
